FAERS Safety Report 19748307 (Version 2)
Quarter: 2021Q4

REPORT INFORMATION
  Report Type: Report from Study
  Country: US (occurrence: US)
  Receive Date: 20210825
  Receipt Date: 20211004
  Transmission Date: 20220304
  Serious: No
  Sender: FDA-Public Use
  Company Number: US-JNJFOC-20210822736

PATIENT
  Sex: Female

DRUGS (2)
  1. STELARA [Suspect]
     Active Substance: USTEKINUMAB
     Indication: Crohn^s disease
     Route: 058
     Dates: start: 20210806
  2. STELARA [Suspect]
     Active Substance: USTEKINUMAB
     Indication: Colitis ulcerative
     Route: 058
     Dates: start: 20210610

REACTIONS (6)
  - Inappropriate schedule of product administration [Unknown]
  - Weight decreased [Unknown]
  - Decreased appetite [Unknown]
  - Needle issue [Unknown]
  - Dental caries [Unknown]
  - Contusion [Unknown]

NARRATIVE: CASE EVENT DATE: 20210806
